FAERS Safety Report 8108443-X (Version None)
Quarter: 2012Q1

REPORT INFORMATION
  Report Type: 
  Country: None (occurrence: None)
  Receive Date: 20120202
  Receipt Date: 20120111
  Transmission Date: 20120608
  Serious: No
  Sender: FDA-Public Use
  Company Number: US-AMGEN-USASP2012002144

PATIENT
  Age: 60 Year
  Sex: Female

DRUGS (2)
  1. ENBREL [Suspect]
     Indication: RHEUMATOID ARTHRITIS
     Dosage: 50 MG, QWK
     Dates: start: 20110701
  2. ENBREL [Suspect]
     Indication: MYASTHENIA GRAVIS

REACTIONS (4)
  - ASTHENIA [None]
  - OXYGEN SUPPLEMENTATION [None]
  - HEADACHE [None]
  - DIARRHOEA [None]
